FAERS Safety Report 18633189 (Version 1)
Quarter: 2020Q4

REPORT INFORMATION
  Report Type: Spontaneous
  Country: NL (occurrence: NL)
  Receive Date: 20201218
  Receipt Date: 20201218
  Transmission Date: 20210114
  Serious: Yes (Other)
  Sender: FDA-Public Use
  Company Number: NL-TEVA-2020-NL-1859036

PATIENT
  Sex: Female
  Weight: 50.5 kg

DRUGS (3)
  1. CALCIUMCARB/COLECALC KAUWTB 1,25G/400IE (500MG CA) / TACAL D3 KAUWTABL [Concomitant]
     Active Substance: CALCIUM CARBONATE\CHOLECALCIFEROL
     Dosage: 500 MILLIGRAM DAILY; THERAPY START DATE; THERAPY END DATE : ASKED BUT UNKNOWN
  2. PREDNISOLON TABLET  5MG / BRAND NAME NOT SPECIFIED [Concomitant]
     Active Substance: PREDNISOLONE
     Indication: POLYMYALGIA RHEUMATICA
     Dosage: 45 MILLIGRAM DAILY; THERAPY START DATE; THERAPY END DATE : ASKED BUT UNKNOWN
  3. ALENDRONINEZUUR TABLET 70MG / BRAND NAME NOT SPECIFIED [Suspect]
     Active Substance: ALENDRONIC ACID
     Indication: PROPHYLAXIS
     Dosage: 70 MG, THERAPY END DATE: ASKED BUT UNKNOWN
     Dates: start: 20201106

REACTIONS (4)
  - Polymyalgia rheumatica [Not Recovered/Not Resolved]
  - Myalgia [Not Recovered/Not Resolved]
  - Arthralgia [Not Recovered/Not Resolved]
  - Bone pain [Not Recovered/Not Resolved]
